FAERS Safety Report 22290886 (Version 3)
Quarter: 2024Q4

REPORT INFORMATION
  Report Type: Spontaneous
  Country: GB (occurrence: GB)
  Receive Date: 20230506
  Receipt Date: 20241203
  Transmission Date: 20250114
  Serious: Yes (Other)
  Sender: AUROBINDO
  Company Number: GB-MYLANLABS-2023M1032684

PATIENT
  Age: 46 Year
  Sex: Male
  Weight: 92 kg

DRUGS (11)
  1. PREGABALIN [Suspect]
     Active Substance: PREGABALIN
     Indication: Anxiety
     Dosage: 300 MILLIGRAM
     Route: 048
  2. ZOPICLONE [Suspect]
     Active Substance: ZOPICLONE
     Indication: Insomnia
     Dosage: 3.75 MILLIGRAM, PRN
     Route: 048
  3. CLOZARIL [Suspect]
     Active Substance: CLOZAPINE
     Indication: Schizophrenia
     Dosage: 237.5 MILLIGRAM
     Route: 048
     Dates: start: 20010701
  4. CLOZAPINE [Suspect]
     Active Substance: CLOZAPINE
     Indication: Schizophrenia
     Dosage: 237.5 MILLIGRAM
     Route: 048
     Dates: start: 20010701
  5. DOCUSATE [Suspect]
     Active Substance: DOCUSATE
     Indication: Constipation
     Dosage: 100 MILLIGRAM, TWO TIMES A DAY (BID)
     Route: 048
  6. EDOXABAN [Suspect]
     Active Substance: EDOXABAN
     Indication: Prophylaxis
     Dosage: 60 MILLIGRAM
     Route: 065
  7. LANSOPRAZOLE [Suspect]
     Active Substance: LANSOPRAZOLE
     Indication: Gastrointestinal disorder
     Dosage: 15 MILLIGRAM
     Route: 048
  8. CITALOPRAM [Concomitant]
     Active Substance: CITALOPRAM
     Indication: Anxiety
     Dosage: 40 MILLIGRAM  (MANY YEARS)
     Route: 048
  9. DIAZEPAM [Concomitant]
     Active Substance: DIAZEPAM
     Indication: Anxiety
     Dosage: 2 MILLIGRAM, PRN (SEVERAL YEARS)
     Route: 048
  10. POLYETHYLENE GLYCOL 3350\POTASSIUM CHLORIDE\SODIUM BICARBONATE\SODIUM [Concomitant]
     Active Substance: POLYETHYLENE GLYCOL 3350\POTASSIUM CHLORIDE\SODIUM BICARBONATE\SODIUM CHLORIDE
     Indication: Constipation
     Dosage: UNK, ONCE A DAY (UNK, QD (DAILY, LONG TERM)
     Route: 048
  11. PENICILLIN V [Concomitant]
     Active Substance: PENICILLIN V
     Indication: Prophylaxis
     Dosage: 250 MILLIGRAM (MORE THAN 20 YEARS BUT UNCERTAIN IN CONSISTENT USE)
     Route: 048

REACTIONS (3)
  - Neutropenia [Recovered/Resolved]
  - Blood test abnormal [Recovered/Resolved]
  - Eosinophil count decreased [Not Recovered/Not Resolved]

NARRATIVE: CASE EVENT DATE: 20200901
